FAERS Safety Report 25930142 (Version 3)
Quarter: 2025Q4

REPORT INFORMATION
  Report Type: Spontaneous
  Country: US (occurrence: US)
  Receive Date: 20251016
  Receipt Date: 20251208
  Transmission Date: 20260117
  Serious: Yes (Hospitalization)
  Sender: ACCORD
  Company Number: US-Accord-507854

PATIENT
  Age: 54 Year
  Sex: Female
  Weight: 61.0 kg

DRUGS (11)
  1. FLUOROURACIL [Suspect]
     Active Substance: FLUOROURACIL
     Indication: Rectal adenocarcinoma
     Dosage: 2400 MG/M2, Q2WEEKS, INTRAVENOUS USE, CYCLE DAY 1 AND 15
     Route: 042
     Dates: start: 20250416, end: 20250418
  2. IRINOTECAN [Suspect]
     Active Substance: IRINOTECAN
     Indication: Rectal adenocarcinoma
     Dosage: 180 MG/M2, Q3WEEKS (CYCLE DAY 1 AND 15)
     Route: 042
     Dates: start: 20250416, end: 20250416
  3. LEUCOVORIN [Suspect]
     Active Substance: LEUCOVORIN\LEUCOVORIN CALCIUM
     Indication: Rectal adenocarcinoma
     Dosage: 400 MG/M2, Q3WEEKS (CYCLE DAY 1 AND 15)
     Route: 042
     Dates: start: 20250416, end: 20250416
  4. CARVEDILOL [Concomitant]
     Active Substance: CARVEDILOL
     Dates: start: 202403
  5. ATROPINE\DIPHENOXYLATE [Concomitant]
     Active Substance: ATROPINE\DIPHENOXYLATE
     Dates: start: 20240702
  6. ESCITALOPRAM [Concomitant]
     Active Substance: ESCITALOPRAM OXALATE
     Dates: start: 20241106
  7. UDENYCA [Concomitant]
     Active Substance: PEGFILGRASTIM-CBQV
     Dates: start: 20250711, end: 20250711
  8. METAMUCIL [Concomitant]
     Active Substance: PLANTAGO SEED
     Dates: start: 2025
  9. FLUOROURACIL [Suspect]
     Active Substance: FLUOROURACIL
     Indication: Rectal adenocarcinoma
     Dosage: 2400 MG/M2, Q2WEEKS, IV USE?CYCLE DAY 1 AND 15
     Route: 042
     Dates: start: 20250723, end: 20250725
  10. IRINOTECAN [Suspect]
     Active Substance: IRINOTECAN
     Indication: Rectal adenocarcinoma
     Dosage: 135 MG/M2, Q3WEEKS, IV USE?(CYCLE DAY 1 AND 15)
     Route: 042
     Dates: start: 20250723, end: 20250723
  11. LEUCOVORIN [Suspect]
     Active Substance: LEUCOVORIN\LEUCOVORIN CALCIUM
     Indication: Rectal adenocarcinoma
     Dosage: 400 MG/M2, Q3WEEKS?(CYCLE DAY 1 AND 15)
     Route: 042
     Dates: start: 20250723, end: 20250723

REACTIONS (1)
  - Colitis [Recovered/Resolved]

NARRATIVE: CASE EVENT DATE: 20250801
